FAERS Safety Report 8362289-6 (Version None)
Quarter: 2012Q2

REPORT INFORMATION
  Report Type: 
  Country: None (occurrence: None)
  Receive Date: 20120515
  Receipt Date: 20120507
  Transmission Date: 20120825
  Serious: Yes (Death, Hospitalization, Other)
  Sender: FDA-Public Use
  Company Number: US-ELI_LILLY_AND_COMPANY-US201205002589

PATIENT
  Age: 90 Year
  Sex: Female

DRUGS (3)
  1. EVISTA [Suspect]
     Dosage: UNK
  2. FORTEO [Suspect]
     Indication: OSTEOPOROSIS
     Dosage: UNK
  3. FOSAMAX [Concomitant]

REACTIONS (4)
  - BONE SARCOMA [None]
  - GASTROOESOPHAGEAL REFLUX DISEASE [None]
  - CARDIAC FAILURE CONGESTIVE [None]
  - BONE DENSITY ABNORMAL [None]
